FAERS Safety Report 24883179 (Version 2)
Quarter: 2025Q1

REPORT INFORMATION
  Report Type: Spontaneous
  Country: BE (occurrence: BE)
  Receive Date: 20250124
  Receipt Date: 20250128
  Transmission Date: 20250409
  Serious: Yes (Other)
  Sender: COSETTE PHARMACEUTICALS INC
  Company Number: BE-COSETTE-CP2025BE000063

PATIENT
  Age: 64 Year
  Sex: Female

DRUGS (1)
  1. AZOR [Suspect]
     Active Substance: AMLODIPINE BESYLATE\OLMESARTAN MEDOXOMIL
     Indication: Hypertension
     Route: 065

REACTIONS (2)
  - Colitis microscopic [Unknown]
  - Diarrhoea [Recovering/Resolving]
